FAERS Safety Report 17194488 (Version 1)
Quarter: 2019Q4

REPORT INFORMATION
  Report Type: Report from Study
  Country: None (occurrence: IL)
  Receive Date: 20191224
  Receipt Date: 20191224
  Transmission Date: 20200122
  Serious: Yes (Death)
  Sender: FDA-Public Use
  Company Number: IL-ABBVIE-18S-082-2476604-00

PATIENT
  Age: 69 Year
  Sex: Male

DRUGS (17)
  1. DUODOPA [Suspect]
     Active Substance: CARBIDOPA\LEVODOPA
     Indication: PARKINSON^S DISEASE
     Dosage: MD- 7.5 ML, CD- 3.3 ML/ HOUR, ED- 1.5 ML
     Route: 050
     Dates: start: 20180814, end: 201808
  2. DUODOPA [Suspect]
     Active Substance: CARBIDOPA\LEVODOPA
     Dosage: MD 7.5 ML, FR 3.3 ML/HR, E 1.0 ML
     Route: 050
  3. DUODOPA [Suspect]
     Active Substance: CARBIDOPA\LEVODOPA
     Dosage: CURRENT MD- 7.5 ML, CD- 3.6 ML/HOUR, ED 1.5 ML.
     Route: 050
  4. DUODOPA [Suspect]
     Active Substance: CARBIDOPA\LEVODOPA
     Dosage: CURRENT: MORNING- 16 ML, FIXED RATE- 3.5 ML/HOUR, ED 1.5 ML.
     Route: 050
     Dates: start: 20180821
  5. DUODOPA [Suspect]
     Active Substance: CARBIDOPA\LEVODOPA
     Dosage: CMD- 4 ML, CR-3.5 ML/ HOUR, EXTRA:- 1ML
     Route: 050
  6. AVILAC [Concomitant]
     Indication: PRODUCT USED FOR UNKNOWN INDICATION
  7. CIPRALEX [Concomitant]
     Active Substance: ESCITALOPRAM OXALATE
     Indication: PRODUCT USED FOR UNKNOWN INDICATION
     Dates: start: 201908
  8. CIPRALEX [Concomitant]
     Active Substance: ESCITALOPRAM OXALATE
     Indication: PRODUCT USED FOR UNKNOWN INDICATION
  9. DUODOPA [Suspect]
     Active Substance: CARBIDOPA\LEVODOPA
     Dosage: CURRENT MD 8ML, CURRENT CD 3.7ML/HOUR, CURRENT CD 1.5ML
     Route: 050
  10. DUODOPA [Suspect]
     Active Substance: CARBIDOPA\LEVODOPA
     Dosage: CMD- 4 ML, CR-3.3 ML/ HOUR,CD- 1 ML
     Route: 050
  11. DUODOPA [Suspect]
     Active Substance: CARBIDOPA\LEVODOPA
     Dosage: CURRENT MD- 10 ML, CURRENT FR- 3.2 ML/ HOUR, CURRENT ED- 0.5ML
     Route: 050
     Dates: start: 20180821, end: 20180821
  12. DUODOPA [Suspect]
     Active Substance: CARBIDOPA\LEVODOPA
     Dosage: MD 8.0 ML, FR 3.7 ML/HR, ED 1.5 ML
     Route: 050
  13. AVILAC [Concomitant]
     Indication: PRODUCT USED FOR UNKNOWN INDICATION
  14. DUODOPA [Suspect]
     Active Substance: CARBIDOPA\LEVODOPA
     Dosage: MD 8 ML, CD 2.9 ML/HOUR, ED 1 ML.
     Route: 050
  15. DUODOPA [Suspect]
     Active Substance: CARBIDOPA\LEVODOPA
     Dosage: MD 8 ML, CD 3.5 ML/HOUR, ED 0.8 ML.
     Route: 050
  16. DUODOPA [Suspect]
     Active Substance: CARBIDOPA\LEVODOPA
     Dosage: CMD- 7 ML, CRD- 3.3 ML/ HOUR, CED- 1 ML
     Route: 050
  17. DUODOPA [Suspect]
     Active Substance: CARBIDOPA\LEVODOPA
     Dosage: CMD- 4 ML, CR-3.9 ML/ HOUR,CD- 1.2 ML
     Route: 050

REACTIONS (16)
  - General physical condition abnormal [Unknown]
  - Pain [Unknown]
  - Motor dysfunction [Unknown]
  - Drug intolerance [Unknown]
  - Tremor [Unknown]
  - Parkinson^s disease [Unknown]
  - Musculoskeletal pain [Recovering/Resolving]
  - Freezing phenomenon [Unknown]
  - Therapeutic product effect incomplete [Unknown]
  - Euthanasia [Fatal]
  - Gait disturbance [Unknown]
  - On and off phenomenon [Recovered/Resolved]
  - Affective disorder [Recovering/Resolving]
  - Dyskinesia [Recovering/Resolving]
  - On and off phenomenon [Not Recovered/Not Resolved]
  - Constipation [Unknown]

NARRATIVE: CASE EVENT DATE: 2018
